FAERS Safety Report 24205156 (Version 1)
Quarter: 2024Q3

REPORT INFORMATION
  Report Type: Spontaneous
  Country: US (occurrence: US)
  Receive Date: 20240813
  Receipt Date: 20240813
  Transmission Date: 20241016
  Serious: No
  Sender: ROCHE
  Company Number: US-ROCHE-10000053982

PATIENT
  Sex: Female

DRUGS (1)
  1. ALECENSA [Suspect]
     Active Substance: ALECTINIB HYDROCHLORIDE
     Indication: Lung neoplasm malignant
     Route: 048

REACTIONS (6)
  - Urticaria [Recovered/Resolved]
  - Lip swelling [Recovered/Resolved]
  - Fatigue [Unknown]
  - Headache [Unknown]
  - Therapy change [Unknown]
  - Pain in extremity [Unknown]
